FAERS Safety Report 15083868 (Version 1)
Quarter: 2018Q3

REPORT INFORMATION
  Report Type: Other
  Country: None (occurrence: US)
  Receive Date: 20180628
  Receipt Date: 20180628
  Transmission Date: 20181010
  Serious: Yes (Hospitalization, Other)
  Sender: FDA-Public Use
  Company Number: US-GUTHY-RENKER, LLC-2050132

PATIENT
  Age: 52 Year
  Sex: Female

DRUGS (2)
  1. PRINCIPAL SECRET RECLAIM REVOLUTIONARY ANTI?AGING DAY SPF 15 [Suspect]
     Active Substance: AVOBENZONE\OCTINOXATE\OCTISALATE\OCTOCRYLENE
     Indication: PROPHYLAXIS AGAINST SOLAR RADIATION
     Route: 061
     Dates: start: 20180614
  2. UNKNOWN MEDICATIONS FOR CANCER THERAPY, IMMUNOSUPPRESSIVE MEDICATION [Concomitant]

REACTIONS (1)
  - Anaphylactic reaction [Recovering/Resolving]

NARRATIVE: CASE EVENT DATE: 20180615
